FAERS Safety Report 8941769 (Version 2)
Quarter: 2013Q1

REPORT INFORMATION
  Report Type: Spontaneous
  Country: US (occurrence: US)
  Receive Date: 20121203
  Receipt Date: 20130312
  Transmission Date: 20140127
  Serious: Yes (Hospitalization)
  Sender: FDA-Public Use
  Company Number: US-PFIZER INC-2012298691

PATIENT
  Sex: 0

DRUGS (4)
  1. FLUOROURACIL [Suspect]
     Indication: COLON CANCER METASTATIC
     Dosage: UNK
     Route: 042
  2. IRINOTECAN HCL [Suspect]
     Indication: COLON CANCER METASTATIC
     Dosage: UNK
     Route: 042
  3. ZALTRAP [Suspect]
     Indication: COLON CANCER METASTATIC
     Dosage: UNK
     Route: 042
  4. FOLINIC ACID [Suspect]
     Indication: COLON CANCER METASTATIC
     Dosage: UNK
     Route: 042

REACTIONS (2)
  - Colitis [Unknown]
  - Diarrhoea [Unknown]
